FAERS Safety Report 23703923 (Version 1)
Quarter: 2024Q2

REPORT INFORMATION
  Report Type: Report from Study
  Country: CA (occurrence: CA)
  Receive Date: 20240403
  Receipt Date: 20240403
  Transmission Date: 20240715
  Serious: Yes (Hospitalization)
  Sender: FDA-Public Use
  Company Number: CA-AKCEA THERAPEUTICS, INC.-2024IS003058

PATIENT

DRUGS (17)
  1. TEGSEDI [Suspect]
     Active Substance: INOTERSEN SODIUM
     Indication: Hereditary neuropathic amyloidosis
     Dosage: 284 MG, QW (300 MG)
     Route: 058
     Dates: start: 20200421
  2. TEGSEDI [Suspect]
     Active Substance: INOTERSEN SODIUM
     Dosage: 284 MG, QW (300 MG)
     Route: 058
     Dates: start: 20200421
  3. MIDODRINE [Suspect]
     Active Substance: MIDODRINE
     Indication: Hypotension
     Dosage: 5 MG, QID
     Route: 048
  4. MIDODRINE [Suspect]
     Active Substance: MIDODRINE
     Dosage: 10 MG, TID
     Route: 048
     Dates: start: 2020
  5. MIDODRINE [Suspect]
     Active Substance: MIDODRINE
     Dosage: 1 DF, BID
     Route: 048
     Dates: start: 2020
  6. MIDODRINE [Suspect]
     Active Substance: MIDODRINE
     Dosage: 5 MG, BID
     Route: 048
     Dates: start: 2020
  7. PEPTO-BISMOL [Suspect]
     Active Substance: BISMUTH SUBSALICYLATE
     Indication: Diarrhoea
     Dosage: UNK, QID
     Route: 065
  8. PEPTO-BISMOL [Suspect]
     Active Substance: BISMUTH SUBSALICYLATE
     Indication: Constipation
  9. MACROBID [Suspect]
     Active Substance: NITROFURANTOIN\NITROFURANTOIN MONOHYDRATE
     Indication: Product used for unknown indication
     Dosage: UNK
     Route: 065
  10. LORATADINE [Concomitant]
     Active Substance: LORATADINE
     Indication: Hypersensitivity
     Dosage: UNK, QD
     Route: 048
  11. ASCORBIC ACID;VITAMIN D NOS [Concomitant]
     Indication: Supplementation therapy
     Dosage: 1000 MG, QD
     Route: 048
  12. VAGISIL [BENZOCAINE] [Concomitant]
     Indication: Vulvovaginal dryness
     Dosage: UNK, PRN
     Route: 061
  13. VENIXXA [Concomitant]
     Indication: Haemorrhoids
     Dosage: UNK, PRN
     Route: 065
  14. RETINOL [Concomitant]
     Active Substance: RETINOL
     Indication: Vitamin A deficiency
     Dosage: UNK, QD (10,000 DAILY)
     Route: 065
  15. BISACODYL [Concomitant]
     Active Substance: BISACODYL
     Indication: Constipation
     Dosage: UNK, PRN
     Route: 065
  16. FOSFOMYCIN [Concomitant]
     Active Substance: FOSFOMYCIN
     Indication: Urinary tract infection
     Dosage: UNK
     Route: 065
     Dates: start: 2012
  17. LOMOTIL [Concomitant]
     Active Substance: ATROPINE SULFATE\DIPHENOXYLATE HYDROCHLORIDE
     Indication: Diarrhoea
     Dosage: UNK
     Route: 065

REACTIONS (5)
  - Staphylococcal infection [Not Recovered/Not Resolved]
  - Urinary tract infection [Recovering/Resolving]
  - Ultrasound kidney abnormal [Unknown]
  - Swelling [Unknown]
  - Adverse drug reaction [Not Recovered/Not Resolved]
